FAERS Safety Report 13132781 (Version 1)
Quarter: 2017Q1

REPORT INFORMATION
  Report Type: Report from Study
  Country: FR (occurrence: FR)
  Receive Date: 20170120
  Receipt Date: 20170120
  Transmission Date: 20170428
  Serious: Yes (Hospitalization)
  Sender: FDA-Public Use
  Company Number: FR-ASTRAZENECA-2016SF17978

PATIENT
  Age: 25072 Day
  Sex: Male
  Weight: 103 kg

DRUGS (4)
  1. AZD2281 [Suspect]
     Active Substance: OLAPARIB
     Indication: HEPATOCELLULAR CARCINOMA
     Route: 048
     Dates: start: 20161128, end: 20161221
  2. AVLOCARDYL [Concomitant]
     Active Substance: PROPRANOLOL HYDROCHLORIDE
     Indication: HYPERTENSION
     Dosage: 6 MONTHS BEFORE ENROLLMENT
     Route: 048
  3. AZD2281 [Suspect]
     Active Substance: OLAPARIB
     Indication: HEPATOCELLULAR CARCINOMA
     Route: 048
     Dates: start: 20160912, end: 20161109
  4. MACROGOL [Concomitant]
     Active Substance: POLYETHYLENE GLYCOLS
     Indication: CONSTIPATION
     Route: 048
     Dates: start: 20160904, end: 20160909

REACTIONS (1)
  - Normochromic normocytic anaemia [Recovered/Resolved]

NARRATIVE: CASE EVENT DATE: 20161104
